FAERS Safety Report 12956551 (Version 1)
Quarter: 2016Q4

REPORT INFORMATION
  Report Type: Spontaneous
  Country: US (occurrence: US)
  Receive Date: 20161119
  Receipt Date: 20161119
  Transmission Date: 20170207
  Serious: No
  Sender: FDA-Public Use
  Company Number: US-ASTRAZENECA-2016SF19181

PATIENT
  Age: 1049 Month
  Sex: Male
  Weight: 90.7 kg

DRUGS (4)
  1. MOVANTIK [Suspect]
     Active Substance: NALOXEGOL OXALATE
     Indication: CANCER PAIN
     Route: 048
     Dates: start: 20161104, end: 20161105
  2. LOTREL [Concomitant]
     Active Substance: AMLODIPINE BESYLATE\BENAZEPRIL HYDROCHLORIDE
     Indication: BLOOD PRESSURE ABNORMAL
     Dosage: 5/20MG DAILY
  3. MOVANTIK [Suspect]
     Active Substance: NALOXEGOL OXALATE
     Indication: CONSTIPATION
     Route: 048
     Dates: start: 20161104, end: 20161105
  4. WARFARIN [Concomitant]
     Active Substance: WARFARIN
     Indication: THROMBOSIS

REACTIONS (4)
  - Abdominal pain upper [Recovering/Resolving]
  - Product use issue [Recovered/Resolved]
  - Off label use [Recovered/Resolved]
  - Abdominal discomfort [Not Recovered/Not Resolved]

NARRATIVE: CASE EVENT DATE: 201611
